FAERS Safety Report 11837079 (Version 1)
Quarter: 2015Q4

REPORT INFORMATION
  Report Type: Other
  Country: TR (occurrence: TR)
  Receive Date: 20151215
  Receipt Date: 20151215
  Transmission Date: 20160305
  Serious: Yes (Hospitalization)
  Sender: FDA-Public Use
  Company Number: TR-COR_00437_2015

PATIENT
  Age: 24 Year
  Sex: Male

DRUGS (3)
  1. ETOPOSIDE. [Suspect]
     Active Substance: ETOPOSIDE
     Indication: TESTICULAR YOLK SAC TUMOUR
     Dosage: FOUR COURSES EVERY TWENTY-ONE DAYS ON THE FIRST 5 DAYS
  2. CISPLATIN. [Suspect]
     Active Substance: CISPLATIN
     Indication: TESTICULAR YOLK SAC TUMOUR
     Dosage: FOUR COURSES EVERY TWENTY-ONE DAYS ON THE FIRST 5 DAYS
  3. BLEOMYCIN [Suspect]
     Active Substance: BLEOMYCIN SULFATE
     Indication: TESTICULAR YOLK SAC TUMOUR
     Dosage: FOUR COURSES EVERY TWENTY-ONE DAYS, DAYS 1, 8 AND 15 OF EACH COURSE

REACTIONS (1)
  - Myocardial infarction [Recovered/Resolved]
